FAERS Safety Report 4382372-X (Version None)
Quarter: 2004Q2

REPORT INFORMATION
  Report Type: 
  Country: None (occurrence: None)
  Receive Date: 20040615
  Receipt Date: 20040524
  Transmission Date: 20050107
  Serious: Yes (Hospitalization)
  Sender: FDA-Public Use
  Company Number: M04-INT-044

PATIENT
  Age: 47 Year
  Sex: Male

DRUGS (3)
  1. INTEGRILIN [Suspect]
     Indication: CORONARY ANGIOPLASTY
     Dosage: SEE IMAGE
     Route: 040
     Dates: start: 20040311, end: 20040311
  2. INTEGRILIN [Suspect]
     Indication: CORONARY ANGIOPLASTY
     Dosage: SEE IMAGE
     Route: 040
     Dates: start: 20040311, end: 20040311
  3. HEPARIN [Concomitant]

REACTIONS (3)
  - DRUG SPECIFIC ANTIBODY PRESENT [None]
  - PETECHIAE [None]
  - THROMBOCYTOPENIA [None]
